FAERS Safety Report 24957294 (Version 1)
Quarter: 2025Q1

REPORT INFORMATION
  Report Type: Spontaneous
  Country: US (occurrence: US)
  Receive Date: 20250211
  Receipt Date: 20250211
  Transmission Date: 20250409
  Serious: Yes (Hospitalization)
  Sender: JOHNSON AND JOHNSON
  Company Number: US-JNJFOC-20250213193

PATIENT
  Age: 72 Year
  Sex: Male

DRUGS (15)
  1. OPSUMIT [Suspect]
     Active Substance: MACITENTAN
     Indication: Product used for unknown indication
     Route: 048
     Dates: end: 2024
  2. REMODULIN [Suspect]
     Active Substance: TREPROSTINIL
     Indication: Product used for unknown indication
     Route: 058
     Dates: start: 20210401
  3. LEVOTHYROXINE SODIUM [Concomitant]
     Active Substance: LEVOTHYROXINE SODIUM
  4. COLACE [Concomitant]
     Active Substance: DOCUSATE SODIUM
  5. MIDODRINE [Concomitant]
     Active Substance: MIDODRINE
  6. ELIQUIS [Concomitant]
     Active Substance: APIXABAN
  7. SENNA S [Concomitant]
     Active Substance: DOCUSATE SODIUM\SENNOSIDES
  8. SEVELAMER [Concomitant]
     Active Substance: SEVELAMER
  9. ATORVASTATIN [Concomitant]
     Active Substance: ATORVASTATIN
  10. SOTATERCEPT [Concomitant]
     Active Substance: SOTATERCEPT
  11. OXYGEN [Concomitant]
     Active Substance: OXYGEN
  12. SENSIPAR [Concomitant]
     Active Substance: CINACALCET HYDROCHLORIDE
  13. ASPIRIN [Concomitant]
     Active Substance: ASPIRIN
  14. AMIODARONE [Concomitant]
     Active Substance: AMIODARONE
  15. B COMPLEX 2000 [Concomitant]

REACTIONS (3)
  - Large intestine infection [Unknown]
  - Hypotension [Unknown]
  - Blood pressure fluctuation [Unknown]
